FAERS Safety Report 15604712 (Version 1)
Quarter: 2018Q4

REPORT INFORMATION
  Report Type: Spontaneous
  Country: IN (occurrence: IN)
  Receive Date: 20181111
  Receipt Date: 20181111
  Transmission Date: 20190205
  Serious: Yes (Hospitalization)
  Sender: FDA-Public Use
  Company Number: PHHY2018IN149667

PATIENT
  Age: 26 Year
  Sex: Male

DRUGS (1)
  1. OXCARBAZEPINE. [Suspect]
     Active Substance: OXCARBAZEPINE
     Indication: ALCOHOL WITHDRAWAL SYNDROME
     Route: 065

REACTIONS (14)
  - Erythema [Recovering/Resolving]
  - Stevens-Johnson syndrome [Recovering/Resolving]
  - Pyrexia [Recovering/Resolving]
  - Central venous pressure increased [Recovering/Resolving]
  - Product use in unapproved indication [Unknown]
  - Wound [Recovering/Resolving]
  - Skin exfoliation [Recovering/Resolving]
  - Skin lesion [Recovering/Resolving]
  - Skin necrosis [Recovering/Resolving]
  - Feeding intolerance [Recovering/Resolving]
  - Acinetobacter infection [Recovering/Resolving]
  - Blister [Recovering/Resolving]
  - Klebsiella infection [Recovering/Resolving]
  - Swelling [Recovering/Resolving]
